FAERS Safety Report 10244831 (Version 3)
Quarter: 2014Q3

REPORT INFORMATION
  Report Type: Spontaneous
  Country: FR (occurrence: FR)
  Receive Date: 20140618
  Receipt Date: 20140819
  Transmission Date: 20150326
  Serious: Yes (Other)
  Sender: FDA-Public Use
  Company Number: FR-JNJFOC-20140610548

PATIENT

DRUGS (1)
  1. REMICADE [Suspect]
     Active Substance: INFLIXIMAB
     Indication: BEHCET^S SYNDROME
     Route: 042

REACTIONS (6)
  - Neoplasm malignant [Unknown]
  - Hypersensitivity [Unknown]
  - Off label use [Unknown]
  - Injection site reaction [Unknown]
  - Infection [Unknown]
  - Adverse drug reaction [Unknown]
